FAERS Safety Report 10899514 (Version 1)
Quarter: 2015Q1

REPORT INFORMATION
  Report Type: Spontaneous
  Country: CA (occurrence: CA)
  Receive Date: 20150309
  Receipt Date: 20150309
  Transmission Date: 20150721
  Serious: Yes (Hospitalization)
  Sender: FDA-Public Use
  Company Number: CA-JAZZ-2015-CA-003378

PATIENT
  Age: 45 Year
  Sex: Female

DRUGS (4)
  1. XYREM [Suspect]
     Active Substance: SODIUM OXYBATE
     Indication: NARCOLEPSY
     Dosage: 2.25 G, BID
     Route: 048
     Dates: start: 20100930, end: 2010
  2. XYREM [Suspect]
     Active Substance: SODIUM OXYBATE
     Dosage: 1.5 G, QD
     Dates: start: 20101123
  3. XYREM [Suspect]
     Active Substance: SODIUM OXYBATE
     Dosage: 1.125 G, BID
     Route: 048
     Dates: start: 20101104, end: 2010
  4. XYREM [Suspect]
     Active Substance: SODIUM OXYBATE
     Dosage: 2 G, QD
     Route: 048
     Dates: start: 20141122

REACTIONS (1)
  - Myelitis [Unknown]

NARRATIVE: CASE EVENT DATE: 20150206
